FAERS Safety Report 8023736-2 (Version None)
Quarter: 2012Q1

REPORT INFORMATION
  Report Type: 
  Country: None (occurrence: None)
  Receive Date: 20120105
  Receipt Date: 20111228
  Transmission Date: 20120608
  Serious: Yes (Death)
  Sender: FDA-Public Use
  Company Number: US-CELGENEUS-163-21660-11110159

PATIENT
  Sex: Female

DRUGS (8)
  1. PRILOSEC [Concomitant]
     Route: 065
  2. DEXAMETHASONE [Concomitant]
     Route: 065
  3. ABRAXANE [Suspect]
     Indication: BREAST CANCER
     Route: 065
  4. COMPAZINE [Concomitant]
     Route: 065
  5. FLONASE [Concomitant]
     Route: 065
  6. ELAVIL [Concomitant]
     Route: 065
  7. METFORMIN HCL [Concomitant]
     Route: 065
  8. DILANTIN [Concomitant]
     Route: 065

REACTIONS (1)
  - BREAST CANCER METASTATIC [None]
